FAERS Safety Report 24426771 (Version 1)
Quarter: 2024Q4

REPORT INFORMATION
  Report Type: Spontaneous
  Country: US (occurrence: None)
  Receive Date: 20241010
  Receipt Date: 20241010
  Transmission Date: 20250114
  Serious: Yes (Hospitalization)
  Sender: Public
  Company Number: None

PATIENT
  Age: 58 Year
  Sex: Female

DRUGS (11)
  1. MYCOPHENOLIC ACID [Suspect]
     Active Substance: MYCOPHENOLIC ACID
     Indication: Transplant
     Dosage: FREQUENCY : DAILY;?
     Route: 048
     Dates: start: 20230627
  2. PREDNISONE [Concomitant]
  3. proair/omeprazole [Concomitant]
  4. ATORVASTATIN [Concomitant]
  5. calsium 500+D/metoprolol [Concomitant]
  6. FLUTICASONE [Concomitant]
  7. GLIPIZIDE [Concomitant]
     Active Substance: GLIPIZIDE
  8. HUMALOG [Concomitant]
     Active Substance: INSULIN LISPRO
  9. LANTUS [Concomitant]
     Active Substance: INSULIN GLARGINE
  10. LEVOTHYROXINE [Concomitant]
  11. lorataldine [Concomitant]

REACTIONS (1)
  - Kidney infection [None]
